FAERS Safety Report 9549446 (Version 2)
Quarter: 2013Q4

REPORT INFORMATION
  Report Type: Spontaneous
  Country: US (occurrence: US)
  Receive Date: 20130924
  Receipt Date: 20131227
  Transmission Date: 20140711
  Serious: No
  Sender: FDA-Public Use
  Company Number: US-009507513-1309USA010538

PATIENT
  Sex: Female
  Weight: 47.62 kg

DRUGS (4)
  1. MIRALAX [Suspect]
     Indication: CONSTIPATION
     Dosage: 17 G, QPM
     Route: 048
     Dates: start: 2009, end: 2013
  2. COMBIGAN [Concomitant]
     Indication: GLAUCOMA
     Dosage: UNK, UNKNOWN
  3. AZOPT [Concomitant]
     Indication: GLAUCOMA
     Dosage: UNK, UNKNOWN
  4. LUMIGAN [Concomitant]
     Indication: GLAUCOMA
     Dosage: UNK, UNKNOWN

REACTIONS (2)
  - Incorrect drug administration duration [Unknown]
  - Product label confusion [Unknown]
